FAERS Safety Report 7051259-6 (Version None)
Quarter: 2010Q4

REPORT INFORMATION
  Report Type: 
  Country: None (occurrence: None)
  Receive Date: 20101018
  Receipt Date: 20101018
  Transmission Date: 20110411
  Serious: Yes (Life-Threatening, Hospitalization, Disabling)
  Sender: FDA-Public Use
  Company Number: None

PATIENT
  Sex: Female
  Weight: 97.5234 kg

DRUGS (2)
  1. BONIVA [Suspect]
     Indication: OSTEOPENIA
     Dosage: 150 MG ONCE MONTHLY
     Dates: start: 20080101
  2. ACTONEL [Suspect]
     Dates: start: 20030101, end: 20080101

REACTIONS (2)
  - FALL [None]
  - FEMUR FRACTURE [None]
